FAERS Safety Report 7153926-2 (Version None)
Quarter: 2010Q4

REPORT INFORMATION
  Report Type: 
  Country: None (occurrence: None)
  Receive Date: 20101213
  Receipt Date: 20101130
  Transmission Date: 20110411
  Serious: Yes (Other)
  Sender: FDA-Public Use
  Company Number: PHHY2010IE81521

PATIENT
  Age: 80 Year
  Sex: Male

DRUGS (11)
  1. DIOVAN HCT [Suspect]
     Dosage: 160/12.5 MG
     Route: 048
     Dates: start: 20060112
  2. DIAMICRON [Concomitant]
     Dosage: 30 MG (2 EVERY 8HRS AND 2 NIGHTLY)
     Route: 048
  3. GLUCOPHAGE [Concomitant]
     Dosage: 2 EVERY 8 HRS AND 2 AT NIGHT
  4. JANUVIA [Concomitant]
     Dosage: 100 MG (EVERY EIGHT HRS)
  5. INSULIN LEVEL FLEXPEN [Concomitant]
     Dosage: 100U/ML-3ML-10 UNITS AT NIGHT
  6. NIACIN [Concomitant]
  7. ASPIRIN [Concomitant]
  8. BISOPROLOL FUMARATE [Concomitant]
     Dosage: 5 MG ONE AT NIGHT
     Route: 048
  9. LIPITOR [Concomitant]
     Indication: DIABETES MELLITUS
     Dosage: 20 MG ONE/ NIGHT
     Route: 048
  10. BIMATOPROST AND TIMOLOL MALEATE [Concomitant]
     Indication: DIABETES MELLITUS
     Dosage: 300 MCG/5ML/L EYEDROPS
  11. ALLOPURINOL [Concomitant]
     Dosage: 100 MG
     Route: 048

REACTIONS (1)
  - HYPONATRAEMIA [None]
